FAERS Safety Report 21014996 (Version 1)
Quarter: 2022Q2

REPORT INFORMATION
  Report Type: Spontaneous
  Country: US (occurrence: US)
  Receive Date: 20220628
  Receipt Date: 20220628
  Transmission Date: 20220721
  Serious: No
  Sender: FDA-Public Use
  Company Number: US-AUROBINDO-AUR-APL-2021-038777

PATIENT
  Sex: Male
  Weight: 61.2 kg

DRUGS (1)
  1. ZOLPIDEM TARTRATE [Suspect]
     Active Substance: ZOLPIDEM TARTRATE
     Indication: Insomnia
     Dosage: 0.5 DOSAGE FORM
     Route: 060
     Dates: start: 20210903, end: 20210903

REACTIONS (10)
  - Nausea [Unknown]
  - Malaise [Not Recovered/Not Resolved]
  - Pain [Unknown]
  - Tremor [Unknown]
  - Product taste abnormal [Unknown]
  - Drug ineffective [Unknown]
  - Wrong technique in product usage process [Unknown]
  - Product substitution issue [Unknown]
  - Product contamination [Unknown]
  - Incorrect route of product administration [Unknown]

NARRATIVE: CASE EVENT DATE: 20210903
